FAERS Safety Report 4767370-6 (Version None)
Quarter: 2005Q3

REPORT INFORMATION
  Report Type: 
  Country: None (occurrence: None)
  Receive Date: 20050913
  Receipt Date: 20050623
  Transmission Date: 20060218
  Serious: Yes (Hospitalization)
  Sender: FDA-Public Use
  Company Number: JP-ROCHE-408611

PATIENT
  Age: 83 Year
  Sex: Male

DRUGS (10)
  1. PANALDINE [Suspect]
     Dosage: INDICATIONS THROMBOSIS PROPHYLAXIS AND STENT PLACEMENT.
     Route: 048
     Dates: start: 20050329, end: 20050610
  2. ARTIST [Suspect]
     Route: 048
     Dates: start: 20050402, end: 20050610
  3. SIGMART [Suspect]
     Route: 048
     Dates: start: 20050330, end: 20050610
  4. ASPIRIN [Concomitant]
     Route: 048
     Dates: start: 20050329, end: 20050610
  5. ALDACTONE [Concomitant]
     Route: 048
     Dates: start: 20050402, end: 20050610
  6. BLOPRESS [Concomitant]
     Route: 048
     Dates: start: 20050329, end: 20050610
  7. GASTROM [Concomitant]
     Route: 048
     Dates: start: 20021220, end: 20050610
  8. TAGAMET [Concomitant]
     Route: 048
     Dates: start: 20021220, end: 20050610
  9. URSODIOL [Concomitant]
     Indication: HEPATIC CIRRHOSIS
     Route: 048
     Dates: start: 20041206, end: 20050610
  10. GLAKAY [Concomitant]
     Route: 048
     Dates: start: 20041206, end: 20050610

REACTIONS (14)
  - ALANINE AMINOTRANSFERASE INCREASED [None]
  - ANOREXIA [None]
  - ASPARTATE AMINOTRANSFERASE INCREASED [None]
  - BILIRUBIN CONJUGATED INCREASED [None]
  - BLOOD ALKALINE PHOSPHATASE INCREASED [None]
  - BLOOD BILIRUBIN INCREASED [None]
  - BLOOD LACTATE DEHYDROGENASE INCREASED [None]
  - GAMMA-GLUTAMYLTRANSFERASE INCREASED [None]
  - HAEMOGLOBIN DECREASED [None]
  - HEPATIC FUNCTION ABNORMAL [None]
  - HEPATITIS CHOLESTATIC [None]
  - JAUNDICE [None]
  - MALAISE [None]
  - WHITE BLOOD CELL COUNT DECREASED [None]
